FAERS Safety Report 9547434 (Version 2)
Quarter: 2013Q4

REPORT INFORMATION
  Report Type: Spontaneous
  Country: US (occurrence: None)
  Receive Date: 20130919
  Receipt Date: 20131001
  Transmission Date: 20140711
  Serious: Yes (Hospitalization)
  Sender: FDA-Public Use
  Company Number: UTC-037776

PATIENT
  Age: 70 Year
  Sex: Male
  Weight: 81.81 kg

DRUGS (2)
  1. TYVASO [Suspect]
     Indication: PORTOPULMONARY HYPERTENSION
     Dosage: 72 MCG (18 MCG, 4 IN 1 D)
     Route: 055
     Dates: start: 20130904
  2. LETAIRIS [Concomitant]

REACTIONS (5)
  - Oedema [None]
  - Communication disorder [None]
  - Hepatic encephalopathy [None]
  - Hepatic failure [None]
  - Portopulmonary hypertension [None]
